FAERS Safety Report 5705910-0 (Version None)
Quarter: 2008Q2

REPORT INFORMATION
  Report Type: 
  Country: None (occurrence: None)
  Receive Date: 20080411
  Receipt Date: 20080326
  Transmission Date: 20081010
  Serious: Yes (Congenital Anomaly)
  Sender: FDA-Public Use
  Company Number: S08-SWE-01320-02

PATIENT
  Sex: Female

DRUGS (1)
  1. CIPRAMIL (CITALOPRAM HXDROBROMIDE) [Suspect]

REACTIONS (4)
  - DRUG EXPOSURE DURING PREGNANCY [None]
  - DUANE'S SYNDROME [None]
  - PREGNANCY [None]
  - STRABISMUS CONGENITAL [None]
